FAERS Safety Report 21644769 (Version 1)
Quarter: 2022Q4

REPORT INFORMATION
  Report Type: Spontaneous
  Country: CN (occurrence: CN)
  Receive Date: 20221125
  Receipt Date: 20221125
  Transmission Date: 20230112
  Serious: Yes (Life-Threatening, Hospitalization, Other)
  Sender: FDA-Public Use
  Company Number: CN-009507513-2211CHN006580

PATIENT
  Age: 75 Year
  Sex: Male

DRUGS (6)
  1. BRIDION [Suspect]
     Active Substance: SUGAMMADEX
     Dosage: 150 MG, ONCE
     Dates: start: 20221111, end: 20221111
  2. LIDOCAINE [Concomitant]
     Active Substance: LIDOCAINE
  3. PROPOFOL [Concomitant]
     Active Substance: PROPOFOL
  4. INSULIN NOS [Concomitant]
     Active Substance: INSULIN NOS
  5. EPINEPHRINE [Concomitant]
     Active Substance: EPINEPHRINE
  6. ROCURONIUM [Concomitant]
     Active Substance: ROCURONIUM BROMIDE

REACTIONS (1)
  - Anaphylactic shock [Unknown]

NARRATIVE: CASE EVENT DATE: 20221111
